FAERS Safety Report 7308221-5 (Version None)
Quarter: 2011Q1

REPORT INFORMATION
  Report Type: 
  Country: None (occurrence: None)
  Receive Date: 20110210
  Receipt Date: 20110131
  Transmission Date: 20110831
  Serious: Yes (Other)
  Sender: FDA-Public Use
  Company Number: 023418

PATIENT
  Sex: Female
  Weight: 113.8529 kg

DRUGS (9)
  1. KEPPRA [Suspect]
     Indication: GRAND MAL CONVULSION
     Dosage: 500 MG BID, 500 (1 IN THE AM AND 1 IN THE PM) ORAL; 500 MG, 500MG (2 IN THE AM AND 2 IN THE PM))
     Route: 048
     Dates: start: 20100701, end: 20101001
  2. KEPPRA [Suspect]
     Indication: GRAND MAL CONVULSION
     Dosage: 500 MG BID, 500 (1 IN THE AM AND 1 IN THE PM) ORAL; 500 MG, 500MG (2 IN THE AM AND 2 IN THE PM))
     Route: 048
     Dates: start: 20101001
  3. ZANTAC /00550802/ [Concomitant]
  4. KEPPRA [Suspect]
     Indication: GRAND MAL CONVULSION
     Dosage: 1000 MG BID, 500MG (2 IN THE AM AND 2 IN THE PM_
     Dates: start: 20080101, end: 20100101
  5. PLAVIX [Concomitant]
  6. VENTOLIN [Concomitant]
  7. CRESTOR [Concomitant]
  8. VITAMINS  NOS [Concomitant]
  9. SYMBICORT [Concomitant]

REACTIONS (1)
  - GRAND MAL CONVULSION [None]
